FAERS Safety Report 5370439-9 (Version None)
Quarter: 2007Q2

REPORT INFORMATION
  Report Type: 
  Country: None (occurrence: None)
  Receive Date: 20070626
  Receipt Date: 20070427
  Transmission Date: 20071010
  Serious: No
  Sender: FDA-Public Use
  Company Number: US-AMGEN-KDL212268

PATIENT
  Sex: Male

DRUGS (13)
  1. PROCRIT [Suspect]
     Indication: RENAL FAILURE CHRONIC
     Dates: start: 20020301, end: 20070112
  2. ARANESP [Suspect]
     Indication: RENAL FAILURE CHRONIC
  3. LIPITOR [Concomitant]
  4. LANTUS [Concomitant]
  5. NOVOLOG [Concomitant]
  6. ASPIRIN [Concomitant]
  7. VITAMIN B-12 [Concomitant]
  8. IRON [Concomitant]
     Route: 048
  9. GLUCOSAMINE [Concomitant]
  10. NORVASC [Concomitant]
  11. CALCITRIOL [Concomitant]
  12. ZETIA [Concomitant]
  13. UNSPECIFIED MEDICATION [Concomitant]

REACTIONS (3)
  - BLOOD CREATINE PHOSPHOKINASE INCREASED [None]
  - MUSCLE SPASMS [None]
  - MYALGIA [None]
